FAERS Safety Report 11590014 (Version 3)
Quarter: 2015Q4

REPORT INFORMATION
  Report Type: Spontaneous
  Country: US (occurrence: US)
  Receive Date: 20151002
  Receipt Date: 20151210
  Transmission Date: 20160304
  Serious: Yes (Death, Hospitalization, Disabling, Other)
  Sender: FDA-Public Use
  Company Number: US-009507513-1510USA000880

PATIENT
  Sex: Female
  Weight: 61.22 kg

DRUGS (12)
  1. SLO NIACIN [Concomitant]
     Dosage: 500 MG, BID
  2. PLAVIX [Concomitant]
     Active Substance: CLOPIDOGREL BISULFATE
     Indication: CORONARY ARTERY DISEASE
     Dosage: 75 MG, QD
  3. ASPIRIN. [Concomitant]
     Active Substance: ASPIRIN
     Indication: CORONARY ARTERY DISEASE
     Dosage: 81 MG, QD
  4. PROAIR HFA [Concomitant]
     Active Substance: ALBUTEROL SULFATE
     Dosage: UNK, PRN
  5. AMITRIPTYLINE HYDROCHLORIDE. [Concomitant]
     Active Substance: AMITRIPTYLINE HYDROCHLORIDE
     Dosage: 25 MG, AT NIGHT
  6. HYDRALAZINE [Concomitant]
     Active Substance: HYDRALAZINE HYDROCHLORIDE
     Dosage: 25 MG, TID
  7. JANUVIA [Suspect]
     Active Substance: SITAGLIPTIN PHOSPHATE
     Indication: TYPE 2 DIABETES MELLITUS
     Dosage: 25 MG, QD
     Route: 048
     Dates: start: 201202, end: 201306
  8. ISOSORBIDE MONONITRATE. [Concomitant]
     Active Substance: ISOSORBIDE MONONITRATE
     Dosage: 30 MG, AT NIGHT
  9. QVAR [Concomitant]
     Active Substance: BECLOMETHASONE DIPROPIONATE
     Dosage: 2 PUFFS Q 12 HOURS
  10. VITAMINS (UNSPECIFIED) [Concomitant]
     Active Substance: VITAMINS
     Dosage: DAILY
  11. CRESTOR [Concomitant]
     Active Substance: ROSUVASTATIN CALCIUM
     Dosage: 40 MG, QD
  12. COREG [Concomitant]
     Active Substance: CARVEDILOL
     Dosage: 25 MG, BID

REACTIONS (31)
  - Pancreatic carcinoma metastatic [Not Recovered/Not Resolved]
  - Death [Fatal]
  - Hypoglycaemia [Unknown]
  - Respiratory failure [Unknown]
  - Anaemia of chronic disease [Not Recovered/Not Resolved]
  - Subclavian vein thrombosis [Unknown]
  - Mucous membrane disorder [Unknown]
  - Lymphadenopathy [Unknown]
  - Cardiac failure congestive [Unknown]
  - Mitral valve incompetence [Unknown]
  - Coronary artery disease [Unknown]
  - Chronic kidney disease [Not Recovered/Not Resolved]
  - Insulin-requiring type 2 diabetes mellitus [Unknown]
  - Depression [Unknown]
  - Diabetic neuropathy [Unknown]
  - Pneumonia [Unknown]
  - Acute kidney injury [Unknown]
  - Diabetes mellitus inadequate control [Unknown]
  - Acute kidney injury [Unknown]
  - Diabetic retinopathy [Unknown]
  - Metastases to liver [Unknown]
  - Diabetes mellitus inadequate control [Unknown]
  - Ischaemic cardiomyopathy [Unknown]
  - Obstruction gastric [Unknown]
  - Cardiac valve disease [Unknown]
  - Hyperglycaemia [Unknown]
  - Peripheral arterial occlusive disease [Unknown]
  - Hypertension [Unknown]
  - Hypertension [Unknown]
  - Diastolic dysfunction [Unknown]
  - Hyperlipidaemia [Unknown]

NARRATIVE: CASE EVENT DATE: 20130301
